FAERS Safety Report 10465134 (Version 3)
Quarter: 2014Q4

REPORT INFORMATION
  Report Type: Spontaneous
  Country: US (occurrence: US)
  Receive Date: 20140919
  Receipt Date: 20141222
  Transmission Date: 20150528
  Serious: Yes (Hospitalization)
  Sender: FDA-Public Use
  Company Number: US-ACTELION-A-NJ2014-105467

PATIENT
  Age: 32 Year
  Sex: Female

DRUGS (6)
  1. VELETRI [Suspect]
     Active Substance: EPOPROSTENOL
     Indication: PULMONARY ARTERIAL HYPERTENSION
     Dosage: 23 NG/KG, PER MIN
     Route: 042
     Dates: start: 20140425
  2. OXYGEN. [Concomitant]
     Active Substance: OXYGEN
  3. XARELTO [Concomitant]
     Active Substance: RIVAROXABAN
  4. SILDENAFIL. [Concomitant]
     Active Substance: SILDENAFIL
  5. HEPARIN [Concomitant]
     Active Substance: HEPARIN SODIUM
  6. TRACLEER [Suspect]
     Active Substance: BOSENTAN\BOSENTAN MONOHYDRATE
     Indication: PULMONARY ARTERIAL HYPERTENSION
     Dosage: 125 MG, BID
     Route: 048
     Dates: start: 20140617, end: 20141203

REACTIONS (1)
  - Heart and lung transplant [Unknown]
